FAERS Safety Report 9564992 (Version 2)
Quarter: 2013Q4

REPORT INFORMATION
  Report Type: Report from Study
  Country: US (occurrence: US)
  Receive Date: 20130930
  Receipt Date: 20131028
  Transmission Date: 20140711
  Serious: Yes (Other)
  Sender: FDA-Public Use
  Company Number: PHEH2013US020296

PATIENT
  Sex: 0

DRUGS (1)
  1. GLEEVEC [Suspect]

REACTIONS (1)
  - Disease recurrence [Unknown]
